FAERS Safety Report 25027450 (Version 1)
Quarter: 2025Q1

REPORT INFORMATION
  Report Type: Spontaneous
  Country: US (occurrence: US)
  Receive Date: 20250301
  Receipt Date: 20250301
  Transmission Date: 20250409
  Serious: No
  Sender: SANOFI AVENTIS
  Company Number: US-SA-2025SA056258

PATIENT
  Age: 75 Year
  Sex: Male
  Weight: 101.15 kg

DRUGS (1)
  1. DUPIXENT [Suspect]
     Active Substance: DUPILUMAB
     Dosage: 300 MG, QOD
     Route: 042
     Dates: start: 20240707

REACTIONS (2)
  - Incorrect route of product administration [Unknown]
  - Inappropriate schedule of product administration [Unknown]
